FAERS Safety Report 23865425 (Version 2)
Quarter: 2024Q3

REPORT INFORMATION
  Report Type: Spontaneous
  Country: US (occurrence: US)
  Receive Date: 20240517
  Receipt Date: 20240806
  Transmission Date: 20241016
  Serious: No
  Sender: Tarsus Pharmaceuticals
  Company Number: US-TARSUS PHARMACEUTICALS-TSP-US-2024-000098

PATIENT
  Sex: Female

DRUGS (5)
  1. XDEMVY [Suspect]
     Active Substance: LOTILANER
     Indication: Blepharitis
     Dosage: 1 DROP, BID
     Route: 047
     Dates: start: 20240305
  2. XDEMVY [Suspect]
     Active Substance: LOTILANER
     Indication: Dry eye
  3. PREDNISOLONE [Concomitant]
     Active Substance: PREDNISOLONE
     Indication: Product used for unknown indication
     Dosage: UNK
     Route: 065
  4. SYSTANE (HYPROMELLOSE 2910 (4000 MPA.S)) [Concomitant]
     Active Substance: HYPROMELLOSE 2910 (4000 MPA.S)
     Indication: Eye lubrication therapy
     Dosage: UNK
     Route: 065
  5. OPDIVO [Concomitant]
     Active Substance: NIVOLUMAB
     Indication: Lung neoplasm malignant
     Dosage: UNK, (EVERY TWO WEEKS)
     Route: 065

REACTIONS (1)
  - Inappropriate schedule of product administration [Unknown]
